FAERS Safety Report 23584559 (Version 1)
Quarter: 2024Q1

REPORT INFORMATION
  Report Type: Spontaneous
  Country: US (occurrence: US)
  Receive Date: 20240301
  Receipt Date: 20240301
  Transmission Date: 20240410
  Serious: No
  Sender: FDA-Public Use
  Company Number: US-CIPLA LTD.-2023US05883

PATIENT

DRUGS (9)
  1. PREGABALIN [Suspect]
     Active Substance: PREGABALIN
     Indication: Neuropathy peripheral
     Dosage: 2 CAPSULES AT NIGHT AND 1 CAPSULE IN MORNING, THRICE A DAY
     Route: 048
     Dates: start: 2020
  2. PREGABALIN [Suspect]
     Active Substance: PREGABALIN
     Dosage: 2 CAPSULES AT NIGHT AND 1 CAPSULE IN MORNING, THRICE A DAY
     Route: 048
     Dates: start: 20230724
  3. MELOXICAM [Concomitant]
     Active Substance: MELOXICAM
     Indication: Inflammation
     Dosage: 1 TABLET (15 MG) IN A DAY
     Route: 065
     Dates: start: 2019
  4. ROSUVASTATIN [Concomitant]
     Active Substance: ROSUVASTATIN
     Indication: Blood cholesterol abnormal
     Dosage: 1 TABLET (5 MG) IN A DAY
     Route: 065
  5. MONTELUKAST [Concomitant]
     Active Substance: MONTELUKAST SODIUM
     Indication: Hypersensitivity
     Dosage: 1 TABLET (10 MG) IN A DAY
     Route: 065
  6. SUPER B COMPLEX [ASCORBIC ACID;BIOTIN;CYANOCOBALAMIN;FOLIC ACID;NICOTI [Concomitant]
     Indication: Neuropathy peripheral
     Dosage: 1 TABLET (1000 MCG) IN A DAY
     Route: 065
     Dates: start: 2022
  7. VITAMIN D3 [Concomitant]
     Active Substance: CHOLECALCIFEROL
     Indication: Vitamin D deficiency
     Dosage: 1 TABLET (5000 IU) IN A DAY
     Route: 065
     Dates: start: 2022
  8. VENLAFAXINE [Concomitant]
     Active Substance: VENLAFAXINE HYDROCHLORIDE
     Indication: Anxiety
     Dosage: 1 TABLET (37.5 MG) IN A DAY
     Route: 065
     Dates: start: 202307
  9. MOUNJARO [Concomitant]
     Active Substance: TIRZEPATIDE
     Indication: Diabetes mellitus
     Dosage: 1 PREFILLED SYRINGE (7.5 MG) SHOT IN A WEEK
     Route: 065
     Dates: start: 2022

REACTIONS (11)
  - Illness [Not Recovered/Not Resolved]
  - Feeding disorder [Not Recovered/Not Resolved]
  - Cold sweat [Not Recovered/Not Resolved]
  - Intentional product use issue [Unknown]
  - Product use issue [Unknown]
  - Product formulation issue [Unknown]
  - Product availability issue [Unknown]
  - Feeling abnormal [Not Recovered/Not Resolved]
  - Withdrawal syndrome [Not Recovered/Not Resolved]
  - Insomnia [Not Recovered/Not Resolved]
  - Hyperhidrosis [Not Recovered/Not Resolved]

NARRATIVE: CASE EVENT DATE: 20230101
